FAERS Safety Report 21322298 (Version 1)
Quarter: 2022Q3

REPORT INFORMATION
  Report Type: Spontaneous
  Country: CN (occurrence: CN)
  Receive Date: 20220912
  Receipt Date: 20220912
  Transmission Date: 20221027
  Serious: Yes (Hospitalization, Other)
  Sender: FDA-Public Use
  Company Number: CN-BoehringerIngelheim-2022-BI-190796

PATIENT
  Sex: Female

DRUGS (3)
  1. LINAGLIPTIN [Suspect]
     Active Substance: LINAGLIPTIN
     Indication: Blood glucose
     Route: 048
     Dates: start: 20220304, end: 20220806
  2. Acarbose Tablets (Glucobay) [Concomitant]
     Indication: Hypoglycaemia
     Route: 048
  3. Metformin Hydrochloride Tablets (Glucophage) [Concomitant]
     Indication: Hypoglycaemia
     Route: 048

REACTIONS (3)
  - Bile duct stone [Recovering/Resolving]
  - Pancreatitis acute [Recovering/Resolving]
  - Product use issue [Unknown]

NARRATIVE: CASE EVENT DATE: 20220801
